FAERS Safety Report 9752129 (Version 1)
Quarter: 2013Q4

REPORT INFORMATION
  Report Type: Spontaneous
  Country: US (occurrence: None)
  Receive Date: 20131211
  Receipt Date: 20131211
  Transmission Date: 20140711
  Serious: Yes (Hospitalization)
  Sender: FDA-Public Use
  Company Number: None

PATIENT
  Sex: 0

DRUGS (23)
  1. BEVACIZUMAB [Suspect]
  2. ADVAIR DISKUS [Concomitant]
  3. ASPIRIN [Concomitant]
  4. COREG [Concomitant]
  5. ENSURE [Concomitant]
  6. FUROSEMIDE [Concomitant]
  7. GLIPIZIDE [Concomitant]
  8. LEVOTHYROXINE SODIUM [Concomitant]
  9. LEXAPRO [Concomitant]
  10. LIPITOR [Concomitant]
  11. LISINOPRIL [Concomitant]
  12. LOFIBRA [Concomitant]
  13. MULTIVITAMINS [Concomitant]
  14. NORVASC [Concomitant]
  15. OMEPRAZOLE [Concomitant]
  16. OXYCODONE HCI [Concomitant]
  17. OXYCONTIN SR [Concomitant]
  18. PLAVIX [Concomitant]
  19. ROCALTROL [Concomitant]
  20. TRICOR [Concomitant]
  21. VITAMIN D [Concomitant]
  22. ZOSYN [Concomitant]
  23. AZITHROMYCIN [Concomitant]

REACTIONS (2)
  - Abdominal pain [None]
  - Melaena [None]
